FAERS Safety Report 9107030 (Version 1)
Quarter: 2013Q1

REPORT INFORMATION
  Report Type: Spontaneous
  Country: BR (occurrence: BR)
  Receive Date: 20130221
  Receipt Date: 20130221
  Transmission Date: 20140127
  Serious: Yes (Other)
  Sender: FDA-Public Use
  Company Number: BR-PFIZER INC-2013062610

PATIENT
  Age: 71 Year
  Sex: Female
  Weight: 53 kg

DRUGS (10)
  1. CELEBRA [Suspect]
     Indication: PAIN
     Dosage: UNK
  2. ARCOXIA [Suspect]
     Indication: LOCAL SWELLING
     Dosage: UNK
  3. ATACAND [Concomitant]
     Dosage: UNK
  4. SELOZOK [Concomitant]
     Dosage: UNK
  5. COLCHICINE [Concomitant]
     Dosage: UNK
  6. MIOSAN [Concomitant]
     Dosage: UNK
  7. OMEPRAZOLE [Concomitant]
     Dosage: UNK
  8. PREDNISONE [Concomitant]
     Dosage: UNK
  9. CYMBALTA [Concomitant]
     Dosage: UNK
  10. GLUCOSAMINE SULFATE [Concomitant]
     Dosage: UNK

REACTIONS (6)
  - Road traffic accident [Unknown]
  - Local swelling [Unknown]
  - Pain in extremity [Not Recovered/Not Resolved]
  - Blood pressure increased [Unknown]
  - Malaise [Unknown]
  - Limb injury [Not Recovered/Not Resolved]
